FAERS Safety Report 7963258 (Version 3)
Quarter: 2013Q1

REPORT INFORMATION
  Report Type: Spontaneous
  Country: US (occurrence: None)
  Receive Date: 20110511
  Receipt Date: 20130222
  Transmission Date: 20140127
  Serious: Yes (Other)
  Sender: FDA-Public Use
  Company Number: ACO_23882_2011

PATIENT
  Age: 57 Year
  Sex: Male

DRUGS (4)
  1. AMPYRA [Suspect]
     Indication: PRODUCT USED FOR UNKNOWN INDICATION
     Dosage: 10 MG, Q 12 HRS, ORAL
     Route: 048
     Dates: start: 20110404, end: 20110407
  2. LEXAPRO [Concomitant]
  3. SYNTHROID (LEVOTHYROXINE SODIUM) [Concomitant]
  4. ZOLPIDEM [Concomitant]

REACTIONS (5)
  - Aphasia [None]
  - Amnesia [None]
  - Muscle rigidity [None]
  - Convulsion [None]
  - Therapeutic response unexpected [None]
